FAERS Safety Report 15373171 (Version 1)
Quarter: 2018Q3

REPORT INFORMATION
  Report Type: Spontaneous
  Country: FR (occurrence: FR)
  Receive Date: 20180912
  Receipt Date: 20180912
  Transmission Date: 20181010
  Serious: Yes (Life-Threatening)
  Sender: FDA-Public Use
  Company Number: FR-TEVA-2018-FR-953780

PATIENT
  Age: 15 Year
  Sex: Male

DRUGS (6)
  1. AMOXICILLINE [Suspect]
     Active Substance: AMOXICILLIN
     Indication: ANTIBIOTIC PROPHYLAXIS
     Dosage: 1 DF
     Route: 042
     Dates: start: 20170414
  2. PROPOFOL. [Concomitant]
     Active Substance: PROPOFOL
     Indication: GENERAL ANAESTHESIA
     Dosage: 1 DF
     Route: 042
     Dates: start: 20170414
  3. RAPIFEN [Concomitant]
     Indication: GENERAL ANAESTHESIA
     Dosage: 1 DF
     Route: 042
     Dates: start: 20170414
  4. LIDOCAINE. [Concomitant]
     Active Substance: LIDOCAINE
     Indication: GENERAL ANAESTHESIA
     Dosage: 1 DF
     Route: 042
     Dates: start: 20170414
  5. NEFOPAM (CHLORHYDRATE DE) [Concomitant]
     Active Substance: NEFOPAM HYDROCHLORIDE
     Indication: GENERAL ANAESTHESIA
     Dosage: 1 DF
     Route: 042
     Dates: start: 20170414
  6. METHYLPREDNISOLONE. [Concomitant]
     Active Substance: METHYLPREDNISOLONE
     Indication: GENERAL ANAESTHESIA
     Dosage: 1 DF
     Route: 042
     Dates: start: 20170414

REACTIONS (1)
  - Anaphylactic shock [Recovered/Resolved]

NARRATIVE: CASE EVENT DATE: 20170414
